FAERS Safety Report 18138231 (Version 1)
Quarter: 2020Q3

REPORT INFORMATION
  Report Type: Other
  Country: US (occurrence: US)
  Receive Date: 20200812
  Receipt Date: 20200812
  Transmission Date: 20201103
  Serious: No
  Sender: FDA-Public Use
  Company Number: US-ROCHE-2657510

PATIENT
  Age: 66 Year
  Sex: Female
  Weight: 57.66 kg

DRUGS (11)
  1. LUNESTA [Concomitant]
     Active Substance: ESZOPICLONE
  2. ESCITALOPRAM [Concomitant]
     Active Substance: ESCITALOPRAM OXALATE
  3. ECOTRIN [Concomitant]
     Active Substance: ASPIRIN
  4. LAMICTAL [Concomitant]
     Active Substance: LAMOTRIGINE
  5. DESYREL [Concomitant]
     Active Substance: TRAZODONE HYDROCHLORIDE
  6. KLONOPIN [Suspect]
     Active Substance: CLONAZEPAM
     Indication: ANXIETY
     Dosage: TAKE 1 TABLET BY MOUTH 2 TIMES A DAY AS NEEDED; ONGOING : UNKNOWN
     Route: 048
  7. PERIACTIN [Concomitant]
     Active Substance: CYPROHEPTADINE HYDROCHLORIDE
  8. VITAMIN D3 [Concomitant]
     Active Substance: CHOLECALCIFEROL
  9. OCREVUS [Suspect]
     Active Substance: OCRELIZUMAB
     Indication: MULTIPLE SCLEROSIS
     Dosage: ONGOING : YES
     Route: 042
     Dates: start: 20200731
  10. ABILIFY [Concomitant]
     Active Substance: ARIPIPRAZOLE
  11. LORAZEPAM. [Concomitant]
     Active Substance: LORAZEPAM

REACTIONS (2)
  - Influenza [Recovered/Resolved]
  - Amnesia [Unknown]

NARRATIVE: CASE EVENT DATE: 20200806
